FAERS Safety Report 6639536-1 (Version None)
Quarter: 2010Q1

REPORT INFORMATION
  Report Type: 
  Country: None (occurrence: None)
  Receive Date: 20100318
  Receipt Date: 20100308
  Transmission Date: 20100710
  Serious: Yes (Hospitalization)
  Sender: FDA-Public Use
  Company Number: FR-JNJFOC-20100303150

PATIENT
  Age: 46 Year
  Sex: Male

DRUGS (7)
  1. LOPERAMIDE HCL [Suspect]
     Indication: DRUG USE FOR UNKNOWN INDICATION
  2. AUGMENTIN [Suspect]
     Indication: DRUG USE FOR UNKNOWN INDICATION
     Route: 048
  3. MALOCIDE [Concomitant]
     Indication: CEREBRAL TOXOPLASMOSIS
     Route: 065
  4. INTELENCE [Concomitant]
     Indication: ACQUIRED IMMUNODEFICIENCY SYNDROME
  5. ABACAVIR SULFATE AND LAMIVUDINE [Concomitant]
     Indication: ACQUIRED IMMUNODEFICIENCY SYNDROME
     Route: 065
  6. DALACINE [Concomitant]
     Indication: CEREBRAL TOXOPLASMOSIS
     Route: 065
  7. PENTACARINAT [Concomitant]
     Route: 065

REACTIONS (1)
  - PANCYTOPENIA [None]
